FAERS Safety Report 26170838 (Version 1)
Quarter: 2025Q4

REPORT INFORMATION
  Report Type: Spontaneous
  Country: EU (occurrence: EU)
  Receive Date: 20251217
  Receipt Date: 20251217
  Transmission Date: 20260117
  Serious: Yes (Other)
  Sender: NOVARTIS
  Company Number: EU-002147023-NVSC2025PL190924

PATIENT
  Sex: Male

DRUGS (1)
  1. COSENTYX [Suspect]
     Active Substance: SECUKINUMAB
     Indication: Product used for unknown indication
     Dosage: UNK
     Route: 065

REACTIONS (9)
  - Visual impairment [Unknown]
  - Photopsia [Unknown]
  - Visual field defect [Unknown]
  - Migraine [Unknown]
  - Photophobia [Unknown]
  - Dizziness [Unknown]
  - Hypoaesthesia [Unknown]
  - Speech disorder [Unknown]
  - Muscle spasms [Unknown]
